FAERS Safety Report 5247325-8 (Version None)
Quarter: 2007Q1

REPORT INFORMATION
  Report Type: 
  Country: None (occurrence: None)
  Receive Date: 20070223
  Receipt Date: 20070223
  Transmission Date: 20070707
  Serious: Yes (Hospitalization)
  Sender: FDA-Public Use
  Company Number: None

PATIENT
  Age: 26 Year
  Sex: Female
  Weight: 86.1834 kg

DRUGS (1)
  1. NUBAIN [Suspect]
     Indication: HEADACHE
     Dosage: UNKNOWN  1 IM   SINGLE DOSE
     Route: 030

REACTIONS (13)
  - ASTHENIA [None]
  - CHEST DISCOMFORT [None]
  - DIZZINESS [None]
  - DRY MOUTH [None]
  - DYSPNOEA [None]
  - FEELING HOT [None]
  - HYPERHIDROSIS [None]
  - HYPERTENSION [None]
  - MUSCLE TIGHTNESS [None]
  - TACHYCARDIA [None]
  - THIRST [None]
  - TINNITUS [None]
  - VISION BLURRED [None]
